FAERS Safety Report 6269465-7 (Version None)
Quarter: 2009Q3

REPORT INFORMATION
  Report Type: 
  Country: None (occurrence: None)
  Receive Date: 20090715
  Receipt Date: 20080819
  Transmission Date: 20100115
  Serious: No
  Sender: FDA-Public Use
  Company Number: US-TYCO HEALTHCARE/MALLINCKRODT-T200801383

PATIENT

DRUGS (3)
  1. OXYCODONE [Suspect]
     Indication: FIBROMYALGIA
     Dates: start: 20080723
  2. SYNTHROID [Concomitant]
     Indication: THYROID DISORDER
  3. ANTIHYPERTENSIVES [Concomitant]
     Indication: HYPERTENSION

REACTIONS (3)
  - DRUG INEFFECTIVE [None]
  - FEELING ABNORMAL [None]
  - WITHDRAWAL SYNDROME [None]
